FAERS Safety Report 7378901-4 (Version None)
Quarter: 2011Q1

REPORT INFORMATION
  Report Type: 
  Country: None (occurrence: None)
  Receive Date: 20110328
  Receipt Date: 20110306
  Transmission Date: 20110831
  Serious: No
  Sender: FDA-Public Use
  Company Number: US-B.I. PHARMACEUTICALS,INC./RIDGEFIELD-2011-BP-06980BP

PATIENT
  Sex: Female

DRUGS (7)
  1. BENAZEPRIL HYDROCHLORIDE [Concomitant]
     Indication: CARDIAC DISORDER
  2. PRADAXA [Suspect]
     Indication: ATRIAL FIBRILLATION
     Dosage: 300 MG
     Route: 048
     Dates: start: 20110226
  3. METOPROLOL SUCCINATE [Concomitant]
     Indication: CARDIAC DISORDER
  4. LORAZEPAM [Concomitant]
     Indication: INSOMNIA
  5. LEVOTHYROXINE SODIUM [Concomitant]
     Indication: HYPOTHYROIDISM
  6. ACIPHEX [Concomitant]
     Indication: CARDIAC DISORDER
  7. NITROFURANTOIN [Concomitant]
     Indication: CARDIAC DISORDER

REACTIONS (5)
  - CHEST PAIN [None]
  - DYSPEPSIA [None]
  - CHEST DISCOMFORT [None]
  - DYSPNOEA [None]
  - FATIGUE [None]
